FAERS Safety Report 8221101 (Version 2)
Quarter: 2012Q4

REPORT INFORMATION
  Report Type: 
  Country: US (occurrence: US)
  Receive Date: 20111102
  Receipt Date: 20121226
  Transmission Date: 20130627
  Serious: Yes (Death, Hospitalization, Congenital Anomaly, Other)
  Sender: FDA-Public Use
  Company Number: US-PFIZER INC-2011264244

PATIENT
  Sex: Male
  Weight: 3 kg

DRUGS (9)
  1. ZOLOFT [Suspect]
     Dosage: UNK
     Route: 064
     Dates: start: 2007, end: 2011
  2. PRENATAL VITAMINS [Concomitant]
     Dosage: UNK
     Route: 064
  3. XANAX [Concomitant]
     Dosage: UNK
     Route: 064
  4. ALBUTEROL [Concomitant]
     Dosage: UNK
     Route: 064
  5. TYLENOL [Concomitant]
     Dosage: UNK
     Route: 064
  6. IRON SUPPLEMENT [Concomitant]
     Dosage: UNK
     Route: 064
  7. TUMS [Concomitant]
     Dosage: UNK
     Route: 064
  8. FISH OIL [Concomitant]
     Dosage: UNK
     Route: 064
  9. BABY ASPIRIN [Concomitant]
     Dosage: UNK
     Route: 064

REACTIONS (13)
  - Maternal exposure timing unspecified [Fatal]
  - Respiratory distress [Fatal]
  - Multiple cardiac defects [Fatal]
  - Transposition of the great vessels [Fatal]
  - Ventricular septal defect [Fatal]
  - Atrial septal defect [Fatal]
  - Double outlet right ventricle [Fatal]
  - Pulmonary malformation [Fatal]
  - Renal failure acute [Fatal]
  - Multi-organ failure [Fatal]
  - Patent ductus arteriosus [Unknown]
  - Atrioventricular block complete [Unknown]
  - Hepatic function abnormal [Unknown]
